FAERS Safety Report 9768219 (Version 1)
Quarter: 2013Q4

REPORT INFORMATION
  Report Type: Report from Study
  Country: CA (occurrence: CA)
  Receive Date: 20131217
  Receipt Date: 20131217
  Transmission Date: 20140711
  Serious: Yes (Other)
  Sender: FDA-Public Use
  Company Number: CA-ABBVIE-13P-028-1179354-00

PATIENT
  Sex: Female
  Weight: 108.96 kg

DRUGS (3)
  1. HUMIRA [Suspect]
     Indication: CROHN^S DISEASE
     Route: 058
     Dates: start: 20080623, end: 2012
  2. HUMIRA [Suspect]
     Route: 058
     Dates: start: 2012
  3. CRESTOR [Concomitant]
     Indication: BLOOD CHOLESTEROL INCREASED
     Route: 048

REACTIONS (4)
  - Goitre [Recovered/Resolved]
  - Thyroid cancer [Recovered/Resolved]
  - Gastrointestinal oedema [Unknown]
  - Arthritis [Not Recovered/Not Resolved]
